FAERS Safety Report 10452258 (Version 2)
Quarter: 2014Q4

REPORT INFORMATION
  Report Type: Spontaneous
  Country: DE (occurrence: DE)
  Receive Date: 20140915
  Receipt Date: 20141022
  Transmission Date: 20150528
  Serious: Yes (Hospitalization, Disabling)
  Sender: FDA-Public Use
  Company Number: DE-JNJFOC-20140902115

PATIENT
  Age: 40 Year
  Sex: Female
  Weight: 42.1 kg

DRUGS (5)
  1. CITALOPRAM [Suspect]
     Active Substance: CITALOPRAM HYDROBROMIDE
     Indication: PRODUCT USED FOR UNKNOWN INDICATION
     Route: 065
  2. RISPERDAL [Suspect]
     Active Substance: RISPERIDONE
     Indication: PRODUCT USED FOR UNKNOWN INDICATION
     Route: 048
     Dates: start: 201209
  3. MELPERON [Suspect]
     Active Substance: MELPERONE
     Indication: PRODUCT USED FOR UNKNOWN INDICATION
     Route: 065
  4. NEUROCIL [Suspect]
     Active Substance: LEVOMEPROMAZINE HYDROCHLORIDE\LEVOMEPROMAZINE MALEATE
     Indication: PRODUCT USED FOR UNKNOWN INDICATION
     Route: 048
     Dates: start: 201209
  5. NEUROCIL [Suspect]
     Active Substance: LEVOMEPROMAZINE HYDROCHLORIDE\LEVOMEPROMAZINE MALEATE
     Indication: PRODUCT USED FOR UNKNOWN INDICATION
     Route: 048
     Dates: start: 201209

REACTIONS (5)
  - Muscle spasms [Unknown]
  - Fear [Unknown]
  - Suicide attempt [Unknown]
  - General physical health deterioration [Recovering/Resolving]
  - Parkinson^s disease [Not Recovered/Not Resolved]

NARRATIVE: CASE EVENT DATE: 20140116
